FAERS Safety Report 9628370 (Version 4)
Quarter: 2013Q4

REPORT INFORMATION
  Report Type: Spontaneous
  Country: US (occurrence: US)
  Receive Date: 20131017
  Receipt Date: 20131223
  Transmission Date: 20140711
  Serious: Yes (Hospitalization)
  Sender: FDA-Public Use
  Company Number: US-BAXTER-2013BAX039997

PATIENT
  Sex: Male

DRUGS (3)
  1. DIANEAL LOW CALCIUM [Suspect]
     Indication: RENAL FAILURE CHRONIC
     Route: 033
     Dates: start: 20110510
  2. DIANEAL LOW CALCIUM [Suspect]
     Route: 033
     Dates: start: 20110510
  3. DIANEAL LOW CALCIUM [Suspect]
     Indication: RENAL FAILURE CHRONIC
     Route: 033
     Dates: start: 20130510

REACTIONS (3)
  - Skin discolouration [Recovering/Resolving]
  - Condition aggravated [Recovering/Resolving]
  - Diabetic vascular disorder [Recovering/Resolving]
